FAERS Safety Report 6297550-2 (Version None)
Quarter: 2009Q3

REPORT INFORMATION
  Report Type: 
  Country: None (occurrence: None)
  Receive Date: 20090805
  Receipt Date: 20090728
  Transmission Date: 20100115
  Serious: Yes (Hospitalization)
  Sender: FDA-Public Use
  Company Number: JP-ASTRAZENECA-2009SE06459

PATIENT
  Age: 60 Year
  Sex: Female

DRUGS (1)
  1. BLOPRESS [Suspect]
     Indication: HYPERTENSION
     Route: 048
     Dates: start: 20070101, end: 20090728

REACTIONS (1)
  - PANCREATITIS ACUTE [None]
